FAERS Safety Report 10703593 (Version 2)
Quarter: 2015Q2

REPORT INFORMATION
  Report Type: Report from Study
  Country: JP (occurrence: None)
  Receive Date: 20150108
  Receipt Date: 20150402
  Transmission Date: 20150821
  Serious: Yes (Death)
  Sender: FDA-Public Use
  Company Number: 201501000001

PATIENT
  Weight: .8 kg

DRUGS (2)
  1. NITRIC OXIDE. [Suspect]
     Active Substance: NITRIC OXIDE
     Indication: RESPIRATORY FAILURE
     Dosage: 10 PPM, CONTINUOUS
     Route: 055
     Dates: start: 20141205, end: 20141205
  2. NITRIC OXIDE. [Suspect]
     Active Substance: NITRIC OXIDE
     Indication: PULMONARY HYPERTENSION
     Dosage: 10 PPM, CONTINUOUS
     Route: 055
     Dates: start: 20141205, end: 20141205

REACTIONS (3)
  - Pulmonary haemorrhage [None]
  - Condition aggravated [None]
  - Pulmonary hypertension [None]
